FAERS Safety Report 20586992 (Version 1)
Quarter: 2022Q1

REPORT INFORMATION
  Report Type: Spontaneous
  Country: CA (occurrence: CA)
  Receive Date: 20220314
  Receipt Date: 20220314
  Transmission Date: 20220423
  Serious: Yes (Hospitalization, Other)
  Sender: FDA-Public Use
  Company Number: CA-JNJFOC-20220322565

PATIENT
  Age: 83 Year
  Sex: Male
  Weight: 78 kg

DRUGS (4)
  1. REMICADE [Suspect]
     Active Substance: INFLIXIMAB
     Indication: Colitis ulcerative
     Route: 042
  2. APIXABAN [Concomitant]
     Active Substance: APIXABAN
  3. PREDNISONE [Concomitant]
     Active Substance: PREDNISONE
  4. VALSARTAN [Concomitant]
     Active Substance: VALSARTAN

REACTIONS (2)
  - Thrombosis [Unknown]
  - Weight decreased [Unknown]
